FAERS Safety Report 18741204 (Version 1)
Quarter: 2021Q1

REPORT INFORMATION
  Report Type: Spontaneous
  Country: US (occurrence: US)
  Receive Date: 20210114
  Receipt Date: 20210114
  Transmission Date: 20210419
  Serious: Yes (Death, Other)
  Sender: FDA-Public Use
  Company Number: None

PATIENT
  Sex: Female

DRUGS (1)
  1. BENZTROPINE MESYLATE 2MG TABLETS [Suspect]
     Active Substance: BENZTROPINE MESYLATE

REACTIONS (1)
  - Death [None]
